FAERS Safety Report 4601810-8 (Version None)
Quarter: 2005Q1

REPORT INFORMATION
  Report Type: 
  Country: None (occurrence: None)
  Receive Date: 20050308
  Receipt Date: 20050225
  Transmission Date: 20050727
  Serious: Yes (Life-Threatening)
  Sender: FDA-Public Use
  Company Number: NL-JNJFOC-20050300019

PATIENT
  Sex: Female
  Weight: 75.5 kg

DRUGS (4)
  1. BLINDED; INFLIXIMAB, RECOMBINANT [Suspect]
     Indication: RHEUMATOID ARTHRITIS
     Route: 042
  2. SULFASALAZINE [Concomitant]
  3. NEXIUM [Concomitant]
  4. LIVIAL [Concomitant]

REACTIONS (1)
  - BASAL CELL CARCINOMA [None]
